FAERS Safety Report 9649435 (Version 1)
Quarter: 2013Q4

REPORT INFORMATION
  Report Type: Spontaneous
  Country: GB (occurrence: GB)
  Receive Date: 20131028
  Receipt Date: 20131028
  Transmission Date: 20140711
  Serious: Yes (Other)
  Sender: FDA-Public Use
  Company Number: GB-TEVA-439661ISR

PATIENT
  Age: 71 Year
  Sex: Male
  Weight: 77 kg

DRUGS (2)
  1. SIMVASTATIN [Suspect]
     Route: 048
     Dates: start: 20130705
  2. OLANZAPINE [Concomitant]
     Indication: SCHIZOPHRENIA
     Dosage: STARTED YEARS AGO.
     Route: 048

REACTIONS (1)
  - Psychotic disorder [Recovered/Resolved]
